FAERS Safety Report 16888014 (Version 7)
Quarter: 2020Q1

REPORT INFORMATION
  Report Type: Report from Study
  Country: GB (occurrence: GB)
  Receive Date: 20191006
  Receipt Date: 20200320
  Transmission Date: 20200409
  Serious: Yes (Hospitalization)
  Sender: FDA-Public Use
  Company Number: GB-NOVOPROD-687137

PATIENT
  Age: 60 Year
  Sex: Male
  Weight: 104 kg

DRUGS (2)
  1. SEMAGLUTIDE B 1.34 MG/ML PDS290 [Suspect]
     Active Substance: SEMAGLUTIDE
     Indication: TYPE 2 DIABETES MELLITUS
     Dosage: 0.5,MG,ONCE PER WEEK
     Route: 058
     Dates: start: 20190802, end: 20190920
  2. SEMAGLUTIDE B 1.34 MG/ML PDS290 [Suspect]
     Active Substance: SEMAGLUTIDE
     Dosage: 0.25 MG, QW
     Route: 058
     Dates: start: 20190927

REACTIONS (6)
  - Irritable bowel syndrome [Recovered/Resolved]
  - Decreased appetite [Recovered/Resolved]
  - Testicular pain [Recovered/Resolved]
  - Abdominal pain [Not Recovered/Not Resolved]
  - Abdominal distension [Recovered/Resolved]
  - Vomiting [Recovered/Resolved]

NARRATIVE: CASE EVENT DATE: 20190919
